FAERS Safety Report 14355231 (Version 1)
Quarter: 2018Q1

REPORT INFORMATION
  Report Type: Spontaneous
  Country: FR (occurrence: FR)
  Receive Date: 20180105
  Receipt Date: 20180105
  Transmission Date: 20180509
  Serious: Yes (Other)
  Sender: FDA-Public Use
  Company Number: FR-MERCK KGAA-2039443

PATIENT
  Age: 47 Year
  Sex: Female
  Weight: 78 kg

DRUGS (3)
  1. NOVOTHYROX [Suspect]
     Active Substance: LEVOTHYROXINE SODIUM
     Indication: THYROID DISORDER
     Route: 048
     Dates: start: 20170503, end: 20171014
  2. PROPRANOLOL [Concomitant]
     Active Substance: PROPRANOLOL HYDROCHLORIDE
     Route: 048
  3. MERCAZOLE [Concomitant]
     Active Substance: CARBIMAZOLE
     Route: 048

REACTIONS (6)
  - Alopecia [Recovered/Resolved]
  - Vertigo [Recovered/Resolved]
  - Tremor [Recovered/Resolved]
  - Fatigue [Recovered/Resolved]
  - Blood thyroid stimulating hormone normal [Recovered/Resolved]
  - Palpitations [Recovered/Resolved]

NARRATIVE: CASE EVENT DATE: 201705
